FAERS Safety Report 5256492-1 (Version None)
Quarter: 2007Q1

REPORT INFORMATION
  Report Type: 
  Country: None (occurrence: None)
  Receive Date: 20070306
  Receipt Date: 20070223
  Transmission Date: 20070707
  Serious: Yes (Other)
  Sender: FDA-Public Use
  Company Number: IE-GLAXOSMITHKLINE-B0460723A

PATIENT
  Sex: Female

DRUGS (4)
  1. LITHIUM CARBONATE [Suspect]
     Indication: MOOD SWINGS
     Route: 065
     Dates: end: 20010101
  2. LARGACTIL [Suspect]
     Route: 065
  3. SURMONTIL [Suspect]
     Route: 065
  4. ACETAMINOPHEN [Suspect]
     Route: 065

REACTIONS (12)
  - BRADYPHRENIA [None]
  - DROOLING [None]
  - FEELING ABNORMAL [None]
  - FLAT AFFECT [None]
  - HALLUCINATION [None]
  - HYPOAESTHESIA [None]
  - IMPAIRED DRIVING ABILITY [None]
  - MENTAL DISORDER [None]
  - MUSCULOSKELETAL STIFFNESS [None]
  - RENAL DISORDER [None]
  - TREMOR [None]
  - WEIGHT INCREASED [None]
